FAERS Safety Report 5590946-3 (Version None)
Quarter: 2007Q4

REPORT INFORMATION
  Report Type: 
  Country: None (occurrence: None)
  Receive Date: 20071214
  Receipt Date: 20070502
  Transmission Date: 20080405
  Serious: Yes (Other)
  Sender: FDA-Public Use
  Company Number: S07-USA-01858-01

PATIENT

DRUGS (1)
  1. NAMENDA [Suspect]

REACTIONS (2)
  - CONVULSION [None]
  - TREMOR [None]
